FAERS Safety Report 8182764-7 (Version None)
Quarter: 2012Q1

REPORT INFORMATION
  Report Type: 
  Country: None (occurrence: None)
  Receive Date: 20120305
  Receipt Date: 20120223
  Transmission Date: 20120608
  Serious: Yes (Hospitalization, Other)
  Sender: FDA-Public Use
  Company Number: US-BAYER-2011-070676

PATIENT
  Age: 29 Year
  Sex: Female
  Weight: 99.773 kg

DRUGS (2)
  1. YASMIN [Suspect]
     Indication: ACNE
     Dosage: UNK
     Dates: start: 20050101, end: 20060101
  2. YASMIN [Suspect]
     Indication: PREMENSTRUAL SYNDROME

REACTIONS (7)
  - PANIC ATTACK [None]
  - HYPOAESTHESIA [None]
  - PULMONARY EMBOLISM [None]
  - TRAUMATIC LUNG INJURY [None]
  - DIZZINESS [None]
  - DYSPNOEA [None]
  - PAIN [None]
